FAERS Safety Report 9803683 (Version 2)
Quarter: 2014Q1

REPORT INFORMATION
  Report Type: Spontaneous
  Country: DE (occurrence: DE)
  Receive Date: 20140108
  Receipt Date: 20140108
  Transmission Date: 20141002
  Serious: Yes (Other)
  Sender: FDA-Public Use
  Company Number: DE-PFIZER INC-2013357922

PATIENT
  Age: 79 Year
  Sex: Female

DRUGS (6)
  1. LONOLOX [Suspect]
     Indication: HYPERTENSION
     Dosage: 2.5 MG, UNK
     Dates: start: 20131205
  2. LONOLOX [Suspect]
     Dosage: 1.5 DF, 2X/DAY
     Dates: start: 20131220
  3. NITROGLYCERIN [Concomitant]
     Dosage: UNK
  4. BAYOTENSIN AKUT [Concomitant]
     Dosage: UNK
  5. STRODIVAL [Concomitant]
     Dosage: 3 MG, UNK
  6. STROPHANTHIN-K [Concomitant]
     Dosage: UNK

REACTIONS (6)
  - Blood pressure inadequately controlled [Unknown]
  - Drug ineffective [Unknown]
  - Abasia [Unknown]
  - Abdominal pain [Unknown]
  - Ocular hyperaemia [Unknown]
  - Blood sodium decreased [Unknown]
